FAERS Safety Report 9343375 (Version 1)
Quarter: 2013Q2

REPORT INFORMATION
  Report Type: Spontaneous
  Country: US (occurrence: US)
  Receive Date: 20130612
  Receipt Date: 20130612
  Transmission Date: 20140414
  Serious: No
  Sender: FDA-Public Use
  Company Number: US-B.I. PHARMACEUTICALS,INC./RIDGEFIELD-2013-BI-15806BP

PATIENT
  Age: 31 Year
  Sex: Female
  Weight: 113 kg

DRUGS (6)
  1. COMBIVENT [Suspect]
     Indication: ASTHMA
     Dosage: STRENGTH: 18 MCG / 103 MCG;
     Route: 055
     Dates: start: 1998
  2. COMBIVENT [Suspect]
     Indication: ASTHMA
     Dosage: STRENGTH: 20 MCG / 100 MCG
     Route: 055
     Dates: start: 201212
  3. SPIRIVA [Suspect]
     Indication: ASTHMA
     Dosage: 18 MCG
     Route: 055
     Dates: start: 2013
  4. SINGULAIR [Concomitant]
     Indication: ASTHMA
     Dosage: 10 MG
     Route: 048
  5. ZYRTEC [Concomitant]
     Dosage: 10 MG
     Route: 048
  6. ALLERGY INJECTIONS [Concomitant]
     Indication: SEASONAL ALLERGY
     Dosage: FORMULATION: SUBCUTANEOUS
     Route: 058

REACTIONS (1)
  - Drug ineffective for unapproved indication [Not Recovered/Not Resolved]
